FAERS Safety Report 23268293 (Version 1)
Quarter: 2023Q4

REPORT INFORMATION
  Report Type: Report from Study
  Country: US (occurrence: US)
  Receive Date: 20231206
  Receipt Date: 20231206
  Transmission Date: 20240109
  Serious: Yes (Hospitalization)
  Sender: FDA-Public Use
  Company Number: US-MYLANLABS-2022M1113765

PATIENT
  Age: 73 Year
  Sex: Female
  Weight: 54.43 kg

DRUGS (1)
  1. TOBI PODHALER [Suspect]
     Active Substance: TOBRAMYCIN
     Indication: Bronchiectasis
     Dosage: 112 MILLIGRAM, BID
     Route: 065
     Dates: start: 20220901, end: 20220912

REACTIONS (4)
  - Hypotension [Unknown]
  - Blood potassium decreased [Unknown]
  - Fatigue [Unknown]
  - Asthenia [Unknown]

NARRATIVE: CASE EVENT DATE: 20220908
